FAERS Safety Report 4470941-8 (Version None)
Quarter: 2004Q4

REPORT INFORMATION
  Report Type: 
  Country: None (occurrence: None)
  Receive Date: 20041011
  Receipt Date: 20041004
  Transmission Date: 20050328
  Serious: Yes (Death)
  Sender: FDA-Public Use
  Company Number: BR-MERCK-0410BRA00079

PATIENT
  Age: 89 Year
  Sex: Female

DRUGS (5)
  1. ASPIRIN [Concomitant]
     Indication: PROPHYLAXIS
     Route: 065
     Dates: start: 19940101
  2. OMEPRAZOLE [Concomitant]
     Route: 065
  3. RANITIDINE [Concomitant]
     Route: 065
  4. VIOXX [Suspect]
     Indication: BRONCHOPNEUMONIA
     Route: 048
     Dates: start: 20040725, end: 20040728
  5. VIOXX [Suspect]
     Indication: URINARY TRACT INFECTION
     Route: 048
     Dates: start: 20040725, end: 20040728

REACTIONS (1)
  - DEATH [None]
